FAERS Safety Report 6739200-4 (Version None)
Quarter: 2010Q2

REPORT INFORMATION
  Report Type: 
  Country: None (occurrence: None)
  Receive Date: 20100525
  Receipt Date: 20100330
  Transmission Date: 20101027
  Serious: No
  Sender: FDA-Public Use
  Company Number: A0852655A

PATIENT
  Age: 55 Year
  Sex: Male

DRUGS (5)
  1. VERAMYST [Suspect]
     Indication: SINUS CONGESTION
     Dosage: 2SPR PER DAY
     Route: 045
     Dates: start: 20100301, end: 20100301
  2. METOPROLOL [Concomitant]
  3. LIPITOR [Concomitant]
  4. NITRATES [Concomitant]
  5. ASPIRIN [Concomitant]

REACTIONS (2)
  - ARTHRALGIA [None]
  - PYREXIA [None]
